FAERS Safety Report 4471352-1 (Version None)
Quarter: 2004Q4

REPORT INFORMATION
  Report Type: 
  Country: None (occurrence: None)
  Receive Date: 20041006
  Receipt Date: 20021111
  Transmission Date: 20050328
  Serious: No
  Sender: FDA-Public Use
  Company Number: 2002AP03964

PATIENT
  Age: 31 Year
  Sex: Female
  Weight: 99.2 kg

DRUGS (4)
  1. DIPRIVAN [Suspect]
     Indication: GENERAL ANAESTHESIA
     Dosage: 83 UG/KG/MIN IV
     Route: 042
  2. ATENOLOL [Concomitant]
  3. ACETYLSALICYLIC ACID [Concomitant]
  4. ORAL CONTRACEPTIVE [Concomitant]

REACTIONS (3)
  - HYPOTENSION [None]
  - METABOLIC ACIDOSIS [None]
  - RESTLESSNESS [None]
